FAERS Safety Report 9537928 (Version 1)
Quarter: 2013Q3

REPORT INFORMATION
  Report Type: Spontaneous
  Country: TR (occurrence: TR)
  Receive Date: 20130919
  Receipt Date: 20130919
  Transmission Date: 20140515
  Serious: Yes (Hospitalization)
  Sender: FDA-Public Use
  Company Number: PHHY2013TR100753

PATIENT
  Age: 15 Year
  Sex: Male

DRUGS (2)
  1. LAMOTRIGINE [Suspect]
     Indication: GRAND MAL CONVULSION
     Dosage: 4 MG/KG, UNK
  2. LAMOTRIGINE [Suspect]
     Dosage: 3 MG/KG, UNK

REACTIONS (4)
  - Pericardial effusion [Recovered/Resolved]
  - Left ventricular failure [Recovered/Resolved]
  - Myocarditis [Recovered/Resolved]
  - Chest pain [Recovered/Resolved]
